FAERS Safety Report 21416847 (Version 1)
Quarter: 2022Q4

REPORT INFORMATION
  Report Type: Spontaneous
  Country: US (occurrence: US)
  Receive Date: 20221006
  Receipt Date: 20221006
  Transmission Date: 20230112
  Serious: No
  Sender: FDA-Public Use
  Company Number: US-ALLERGAN-2229741US

PATIENT
  Sex: Female

DRUGS (3)
  1. VRAYLAR [Suspect]
     Active Substance: CARIPRAZINE
     Indication: Bipolar disorder
     Dosage: 1.5 MG
     Route: 048
  2. VRAYLAR [Suspect]
     Active Substance: CARIPRAZINE
     Dosage: 3 MG
     Route: 048
  3. VRAYLAR [Suspect]
     Active Substance: CARIPRAZINE
     Dosage: 1.5 MG
     Route: 048

REACTIONS (12)
  - Emotional distress [Unknown]
  - Therapeutic product effect increased [Unknown]
  - Cerebral disorder [Unknown]
  - Speech disorder [Unknown]
  - Confusional state [Unknown]
  - Amnesia [Unknown]
  - Cognitive disorder [Unknown]
  - Malaise [Unknown]
  - Blood triglycerides increased [Unknown]
  - Hypertension [Unknown]
  - Diabetes mellitus [Unknown]
  - Musculoskeletal stiffness [Unknown]
